FAERS Safety Report 14201106 (Version 5)
Quarter: 2018Q1

REPORT INFORMATION
  Report Type: Report from Study
  Country: CO (occurrence: CO)
  Receive Date: 20171117
  Receipt Date: 20180216
  Transmission Date: 20180508
  Serious: Yes (Death, Hospitalization)
  Sender: FDA-Public Use
  Company Number: PHHY2017CO168625

PATIENT
  Age: 41 Year
  Sex: Female
  Weight: 50 kg

DRUGS (1)
  1. ENTRESTO [Suspect]
     Active Substance: SACUBITRIL\VALSARTAN
     Indication: CARDIAC FAILURE
     Dosage: 50 MG, Q12H
     Route: 048
     Dates: start: 20171011, end: 20171216

REACTIONS (10)
  - Infarction [Unknown]
  - Aphonia [Unknown]
  - Diabetic coma [Fatal]
  - Myocardial infarction [Fatal]
  - Oedema peripheral [Unknown]
  - Angina unstable [Fatal]
  - Cardiomegaly [Unknown]
  - Mobility decreased [Unknown]
  - Abdominal distension [Unknown]
  - Face oedema [Unknown]

NARRATIVE: CASE EVENT DATE: 20171226
